FAERS Safety Report 4429254-2 (Version None)
Quarter: 2004Q3

REPORT INFORMATION
  Report Type: 
  Country: None (occurrence: None)
  Receive Date: 20040817
  Receipt Date: 20040817
  Transmission Date: 20050211
  Serious: Yes (Death, Hospitalization, Other)
  Sender: FDA-Public Use
  Company Number: None

PATIENT
  Age: 82 Year
  Sex: Female

DRUGS (3)
  1. BEVACIZUMAB [Suspect]
     Indication: METASTATIC NEOPLASM
     Dates: start: 20040601, end: 20040726
  2. FLUOROURACIL [Suspect]
  3. LEUCOVORIN [Suspect]

REACTIONS (3)
  - DIARRHOEA [None]
  - GASTROINTESTINAL TOXICITY [None]
  - HYPOTENSION [None]
